FAERS Safety Report 10386038 (Version 1)
Quarter: 2014Q1

REPORT INFORMATION
  Report Type: Spontaneous
  Country: US (occurrence: None)
  Receive Date: 20140306
  Receipt Date: 20140306
  Transmission Date: 20141002
  Serious: Yes (Other)
  Sender: FDA-Public Use
  Company Number: 163-21880-13071204

PATIENT
  Age: 65 Year
  Sex: Male

DRUGS (10)
  1. REVLIMID ?(LENALIDOMIDE 10 MILLIGRAM, CAPSULES) [Suspect]
     Indication: PLASMA CELL MYELOMA
     Dosage: 10MG, 21 IN 28 D, PO
     Route: 048
     Dates: start: 201108
  2. LOPERAMIDE HCL [Concomitant]
  3. PROBIOTIC (BIFIDOBACTERIUM LACTIS) [Concomitant]
  4. ZOFRAN (ONDANSETRON HYDROCHLORIDE) [Concomitant]
  5. ANUSOL HCL [Concomitant]
  6. RANITIDINE HCL [Concomitant]
  7. CALCIUM [Concomitant]
  8. VITAMIN D (ERGOCALCIFEROL) [Concomitant]
  9. MULTIVITAMINS [Concomitant]
  10. COUMADIN (WARFARIN SODIUM) [Concomitant]

REACTIONS (4)
  - Fatigue [None]
  - Diarrhoea [None]
  - Malaise [None]
  - Mood altered [None]
